FAERS Safety Report 8931901 (Version 1)
Quarter: 2012Q4

REPORT INFORMATION
  Report Type: 
  Country: JP (occurrence: JP)
  Receive Date: 20121128
  Receipt Date: 20121128
  Transmission Date: 20130627
  Serious: Yes (Other)
  Sender: FDA-Public Use
  Company Number: JP-PFIZER INC-2012296265

PATIENT

DRUGS (1)
  1. AMLODIN [Suspect]
     Dosage: 5 mg, daily

REACTIONS (1)
  - Interstitial lung disease [Not Recovered/Not Resolved]
